FAERS Safety Report 6353171-4 (Version None)
Quarter: 2009Q3

REPORT INFORMATION
  Report Type: 
  Country: None (occurrence: None)
  Receive Date: 20090912
  Receipt Date: 20090622
  Transmission Date: 20100115
  Serious: No
  Sender: FDA-Public Use
  Company Number: US-ABBOTT-08P-163-0458315-00

PATIENT
  Sex: Female

DRUGS (12)
  1. HUMIRA [Suspect]
     Indication: PSORIATIC ARTHROPATHY
     Route: 058
     Dates: start: 20070901
  2. PROPOXY/APAP [Concomitant]
     Indication: PAIN
     Route: 048
  3. ACETAMINOPHEN W/ PROPOXYPHENE HCL [Concomitant]
     Indication: PAIN
     Route: 048
  4. LANSOPRAZOLE [Concomitant]
     Indication: GASTROOESOPHAGEAL REFLUX DISEASE
     Route: 048
     Dates: start: 20070701
  5. PROMADOL [Concomitant]
     Indication: DRUG USE FOR UNKNOWN INDICATION
     Route: 048
  6. NAPROXEN SODIUM [Concomitant]
     Indication: RHEUMATOID ARTHRITIS
     Route: 048
  7. THERAMINE [Concomitant]
     Indication: MEDICAL DIET
     Route: 048
     Dates: start: 20071101
  8. GABAPENTIN [Concomitant]
     Indication: MEDICAL DIET
     Route: 048
     Dates: start: 20071101
  9. METHOTREXATE [Concomitant]
     Indication: RHEUMATOID ARTHRITIS
     Dosage: 2.5 MG; 6 PILLS WEEKLY
     Route: 048
     Dates: start: 20070601
  10. ZOLPIDEM TARTRATE [Concomitant]
     Indication: SLEEP DISORDER THERAPY
     Dosage: 10 MG AT NIGHT
     Route: 048
     Dates: start: 20070601
  11. FLURAZEPAM [Concomitant]
     Indication: PAIN
     Route: 048
  12. LIDOCAINE HYDROCHLORIDE [Concomitant]
     Indication: PAIN
     Dosage: PATCH
     Route: 061

REACTIONS (2)
  - DRUG DELIVERY SYSTEM MALFUNCTION [None]
  - INCORRECT DOSE ADMINISTERED [None]
